FAERS Safety Report 13363500 (Version 1)
Quarter: 2017Q1

REPORT INFORMATION
  Report Type: Spontaneous
  Country: SI (occurrence: SI)
  Receive Date: 20170323
  Receipt Date: 20170323
  Transmission Date: 20170429
  Serious: Yes (Other)
  Sender: FDA-Public Use
  Company Number: SI-JNJFOC-20170322369

PATIENT

DRUGS (1)
  1. XARELTO [Suspect]
     Active Substance: RIVAROXABAN
     Indication: ATRIAL FIBRILLATION
     Route: 048

REACTIONS (16)
  - Transient ischaemic attack [Unknown]
  - Ischaemic stroke [Unknown]
  - Haemorrhage intracranial [Unknown]
  - Embolism [Unknown]
  - Peripheral embolism [Unknown]
  - Drug intolerance [Unknown]
  - Renal impairment [Unknown]
  - Discomfort [Unknown]
  - Drug interaction [Unknown]
  - Hepatic function abnormal [Unknown]
  - Dyspepsia [Unknown]
  - Myocardial infarction [Unknown]
  - Embolism venous [Unknown]
  - Adverse event [Unknown]
  - Gastrointestinal haemorrhage [Unknown]
  - Haemorrhage [Unknown]
